FAERS Safety Report 5702682-0 (Version None)
Quarter: 2008Q2

REPORT INFORMATION
  Report Type: 
  Country: None (occurrence: None)
  Receive Date: 20080410
  Receipt Date: 20080410
  Transmission Date: 20081010
  Serious: Yes (Hospitalization)
  Sender: FDA-Public Use
  Company Number: None

PATIENT
  Sex: Male
  Weight: 75.5 kg

DRUGS (2)
  1. ASPIRIN [Suspect]
     Indication: CORONARY ARTERY DISEASE
     Dosage: 81 MG DAILY PO
     Route: 048
     Dates: start: 20070207, end: 20080409
  2. WARFARIN SODIUM [Suspect]
     Indication: ATRIAL FIBRILLATION
     Dosage: 7.5MG Q T-R-S-SU, 10MG Q MWF DAILY PO
     Route: 048
     Dates: start: 20080307, end: 20080327

REACTIONS (5)
  - DYSPNOEA EXERTIONAL [None]
  - GASTROINTESTINAL HAEMORRHAGE [None]
  - HAEMATOCRIT DECREASED [None]
  - HAEMOGLOBIN DECREASED [None]
  - MELAENA [None]
